FAERS Safety Report 6370673-5 (Version None)
Quarter: 2009Q3

REPORT INFORMATION
  Report Type: 
  Country: None (occurrence: None)
  Receive Date: 20090923
  Receipt Date: 20071128
  Transmission Date: 20100115
  Serious: Yes (Other)
  Sender: FDA-Public Use
  Company Number: US-ASTRAZENECA-2006UW25237

PATIENT
  Age: 12051 Day
  Sex: Male
  Weight: 95.3 kg

DRUGS (11)
  1. SEROQUEL [Suspect]
     Indication: ANXIETY
     Dosage: 25-100 MG
     Route: 048
     Dates: start: 20051101, end: 20060301
  2. SEROQUEL [Suspect]
     Indication: DEPRESSION
     Dosage: 25-100 MG
     Route: 048
     Dates: start: 20051101, end: 20060301
  3. SEROQUEL [Suspect]
     Indication: ATTENTION DEFICIT/HYPERACTIVITY DISORDER
     Dosage: 25-100 MG
     Route: 048
     Dates: start: 20051101, end: 20060301
  4. HYDROCODONE [Concomitant]
     Indication: PAIN
     Route: 048
  5. ABILIFY [Concomitant]
     Route: 048
  6. CLONAZEPAM [Concomitant]
     Route: 048
  7. STRATTERA [Concomitant]
     Dosage: 50-120MG
     Route: 048
  8. ALPRAZOLAM [Concomitant]
     Route: 048
  9. LORATADINE [Concomitant]
     Route: 048
  10. VYTORIN [Concomitant]
     Dosage: 10-20MG
     Route: 048
  11. ADVAIR DISKUS 100/50 [Concomitant]
     Dosage: 250/50, 1PUFF TWICE A DAY
     Route: 048

REACTIONS (9)
  - DIZZINESS [None]
  - DYSURIA [None]
  - HEADACHE [None]
  - HYPERGLYCAEMIA [None]
  - HYPOGLYCAEMIA [None]
  - IRRITABLE BOWEL SYNDROME [None]
  - LIGAMENT RUPTURE [None]
  - NICOTINE DEPENDENCE [None]
  - SYNCOPE [None]
